FAERS Safety Report 10092192 (Version 2)
Quarter: 2014Q2

REPORT INFORMATION
  Report Type: Spontaneous
  Country: US (occurrence: US)
  Receive Date: 20140421
  Receipt Date: 20140421
  Transmission Date: 20141212
  Serious: No
  Sender: FDA-Public Use
  Company Number: US-SANOFI-AVENTIS-2013SA021701

PATIENT
  Age: 55 Year
  Sex: Male

DRUGS (1)
  1. ALLEGRA [Suspect]
     Indication: HYPERSENSITIVITY
     Route: 048
     Dates: start: 20130223, end: 20130225

REACTIONS (3)
  - Headache [Recovered/Resolved]
  - Head discomfort [Unknown]
  - Drug ineffective [Unknown]
